FAERS Safety Report 10046237 (Version 1)
Quarter: 2014Q1

REPORT INFORMATION
  Report Type: Spontaneous
  Country: US (occurrence: None)
  Receive Date: 20140326
  Receipt Date: 20140326
  Transmission Date: 20141002
  Serious: Yes (Hospitalization)
  Sender: FDA-Public Use
  Company Number: 2259815

PATIENT
  Age: 17 Year
  Sex: Female

DRUGS (4)
  1. VINCRISTINE SULFATE [Suspect]
     Indication: RENAL CANCER STAGE IV
     Dosage: 1.5 MG/M^2/DOSE, CYCLICAL, INTRAVENOUS
     Route: 042
  2. IRINOTECAN HYDROCHLORIDE [Suspect]
     Indication: RENAL CANCER STAGE IV
     Dosage: 20 MG/M^2/DAY, CYCLICAL, INTRAVENOUS (NOT OTHERWISE SPECIFIED)
     Route: 042
  3. BEVACIZUMAB [Suspect]
     Indication: RENAL CANCER STAGE IV
     Dosage: 15 MG/KG/DAY, 1 DAY, INTRAVENOUS (NOT OTHERWISE SPECIFIED)
     Route: 042
  4. (TEMOZOLOMIDE) [Suspect]
     Indication: RENAL CANCER STAGE IV
     Dosage: 100 MG/M 2 MILLIGRAM(S)/SQ. METER (UNKNOWN)
     Route: 048

REACTIONS (6)
  - Diarrhoea [None]
  - Weight decreased [None]
  - Neuropathy peripheral [None]
  - Febrile neutropenia [None]
  - Pulmonary mass [None]
  - Lymphadenopathy [None]
